FAERS Safety Report 21676051 (Version 2)
Quarter: 2022Q4

REPORT INFORMATION
  Report Type: Spontaneous
  Country: FR (occurrence: FR)
  Receive Date: 20221202
  Receipt Date: 20221208
  Transmission Date: 20230112
  Serious: Yes (Death, Other)
  Sender: FDA-Public Use
  Company Number: FR-009507513-2212FRA000722

PATIENT

DRUGS (1)
  1. KEYTRUDA [Suspect]
     Active Substance: PEMBROLIZUMAB
     Indication: Colorectal cancer
     Dosage: 200 MILLIGRAM (ADMINISTERED 2 INFUSIONS)

REACTIONS (4)
  - Subileus [Fatal]
  - Pulmonary embolism [Fatal]
  - General physical health deterioration [Fatal]
  - Malignant neoplasm progression [Fatal]
